FAERS Safety Report 4514770-5 (Version None)
Quarter: 2004Q4

REPORT INFORMATION
  Report Type: 
  Country: None (occurrence: None)
  Receive Date: 20041124
  Receipt Date: 20041124
  Transmission Date: 20050328
  Serious: No
  Sender: FDA-Public Use
  Company Number: None

PATIENT
  Age: 80 Year
  Sex: Female
  Weight: 53.5244 kg

DRUGS (1)
  1. FLUOROURACIL [Suspect]
     Indication: RECTAL CANCER
     Dosage: 450 MG DAILY INTRAVENOUS
     Route: 042
     Dates: start: 20041119, end: 20041126

REACTIONS (1)
  - RASH GENERALISED [None]
